FAERS Safety Report 17027332 (Version 1)
Quarter: 2019Q4

REPORT INFORMATION
  Report Type: Spontaneous
  Country: CN (occurrence: CN)
  Receive Date: 20191113
  Receipt Date: 20191113
  Transmission Date: 20200122
  Serious: Yes (Other)
  Sender: FDA-Public Use
  Company Number: CN-PFIZER INC-2019482985

PATIENT
  Age: 94 Year
  Sex: Male
  Weight: 50 kg

DRUGS (16)
  1. VORICONAZOLE. [Suspect]
     Active Substance: VORICONAZOLE
     Indication: INFECTION
     Dosage: 0.2 G, 2X/DAY (EVERY 12 HOURS)
     Route: 048
     Dates: start: 20191006, end: 20191009
  2. TEICOPLANIN [Concomitant]
     Active Substance: TEICOPLANIN
     Indication: INFECTION
     Dosage: UNK
     Dates: start: 2019
  3. MOXIFLOXACIN. [Concomitant]
     Active Substance: MOXIFLOXACIN
     Indication: PRODUCTIVE COUGH
  4. MEZLOCILLIN SODIUM MONOHYDRATE. [Concomitant]
     Active Substance: MEZLOCILLIN SODIUM MONOHYDRATE
     Indication: INFECTION
     Dosage: UNK
     Dates: start: 2019
  5. MEZLOCILLIN SODIUM MONOHYDRATE. [Concomitant]
     Active Substance: MEZLOCILLIN SODIUM MONOHYDRATE
     Indication: PRODUCTIVE COUGH
  6. MEROPENEM. [Concomitant]
     Active Substance: MEROPENEM
     Indication: INFECTION
     Dosage: 0.5 G, 2X/DAY
     Dates: start: 20191009
  7. MOXIFLOXACIN. [Concomitant]
     Active Substance: MOXIFLOXACIN
     Indication: INFECTION
     Dosage: UNK
     Dates: start: 2019
  8. BIAPENEM [Concomitant]
     Active Substance: BIAPENEM
     Indication: INFECTION
     Dosage: UNK
     Dates: start: 2019
  9. BIAPENEM [Concomitant]
     Active Substance: BIAPENEM
     Indication: PRODUCTIVE COUGH
  10. GANCICLOVIR. [Concomitant]
     Active Substance: GANCICLOVIR
     Indication: INFECTION
     Dosage: UNK
     Dates: start: 201910
  11. LINEZOLID. [Concomitant]
     Active Substance: LINEZOLID
     Indication: INFECTION
     Dosage: 0.6 G, 2X/DAY (EVERY 12 HOURS)
     Route: 041
     Dates: start: 20191006, end: 20191009
  12. TEICOPLANIN [Concomitant]
     Active Substance: TEICOPLANIN
     Indication: PRODUCTIVE COUGH
  13. SULBACTAM SODIUM [Concomitant]
     Active Substance: SULBACTAM SODIUM
     Indication: INFECTION
     Dosage: UNK
     Dates: start: 2019
  14. SULBACTAM SODIUM [Concomitant]
     Active Substance: SULBACTAM SODIUM
     Indication: PRODUCTIVE COUGH
  15. FLUCONAZOLE. [Concomitant]
     Active Substance: FLUCONAZOLE
     Indication: INFECTION
     Dosage: UNK
     Dates: start: 201910
  16. SODIUM CHLORIDE 0.9% [Concomitant]
     Active Substance: SODIUM CHLORIDE
     Indication: INFECTION
     Dosage: 100 ML, UNK
     Dates: start: 20191009

REACTIONS (4)
  - Hallucination [Recovering/Resolving]
  - Visual impairment [Recovering/Resolving]
  - Colour blindness [Recovering/Resolving]
  - Delirium [Recovering/Resolving]

NARRATIVE: CASE EVENT DATE: 20191008
